FAERS Safety Report 8315696-1 (Version None)
Quarter: 2012Q2

REPORT INFORMATION
  Report Type: 
  Country: None (occurrence: None)
  Receive Date: 20120426
  Receipt Date: 20120424
  Transmission Date: 20120825
  Serious: Yes (Other)
  Sender: FDA-Public Use
  Company Number: PHHY2012GB022909

PATIENT
  Age: 62 Year
  Sex: Male
  Weight: 96 kg

DRUGS (6)
  1. ALBUTEROL [Concomitant]
     Dates: start: 20111123, end: 20111221
  2. SIMVASTATIN [Concomitant]
     Dates: start: 20111202
  3. RAMIPRIL [Suspect]
     Dosage: UNK
     Dates: start: 20120229, end: 20120305
  4. BENDROFLUMETHIAZIDE [Concomitant]
     Dates: start: 20111202
  5. AMLODIPINE [Concomitant]
     Dates: start: 20111202
  6. ALBUTEROL [Concomitant]

REACTIONS (3)
  - COUGH [None]
  - DYSPNOEA [None]
  - WHEEZING [None]
